FAERS Safety Report 24665563 (Version 1)
Quarter: 2024Q4

REPORT INFORMATION
  Report Type: Spontaneous
  Country: GB (occurrence: GB)
  Receive Date: 20241126
  Receipt Date: 20241126
  Transmission Date: 20250115
  Serious: Yes (Other)
  Sender: ELI LILLY AND COMPANY
  Company Number: GB-MHRA-TPP7185933C8192302YC1731497916016

PATIENT
  Age: 75 Year
  Sex: Female
  Weight: 124 kg

DRUGS (21)
  1. MOUNJARO [Suspect]
     Active Substance: TIRZEPATIDE
     Indication: Product used for unknown indication
     Dosage: UNK UNK, WEEKLY (1/W)
     Route: 065
  2. MOUNJARO [Suspect]
     Active Substance: TIRZEPATIDE
     Indication: Product used for unknown indication
     Dosage: 5 MG, WEEKLY (1/W)
     Route: 065
     Dates: start: 20240823
  3. BACTIGRAS [CHLORHEXIDINE DIACETATE] [Concomitant]
     Indication: Ill-defined disorder
     Dosage: UNK UNK, UNKNOWN
     Route: 065
     Dates: start: 20240822, end: 20240911
  4. 3M CAVILON ANTIFUNGAL [Concomitant]
     Active Substance: MICONAZOLE NITRATE
     Indication: Ill-defined disorder
     Dosage: UNK UNK, UNKNOWN
     Route: 065
     Dates: start: 20241022, end: 20241101
  5. DERMOL [CLOBETASOL PROPIONATE] [Concomitant]
     Indication: Product used for unknown indication
     Dosage: UNK UNK, UNKNOWN
     Route: 065
     Dates: start: 20241022
  6. FUSIDIC ACID [Concomitant]
     Active Substance: FUSIDIC ACID
     Indication: Ill-defined disorder
     Dosage: UNK UNK, OTHER (APPLY 3 OR 4 TIMES DAILY)
     Route: 065
     Dates: start: 20240926, end: 20241003
  7. HYDROCORTISONE [Concomitant]
     Active Substance: HYDROCORTISONE
     Indication: Ill-defined disorder
     Dosage: UNK UNK, BID
     Route: 065
     Dates: start: 20240905, end: 20240912
  8. BETAMETHASONE VALERATE [Concomitant]
     Active Substance: BETAMETHASONE VALERATE
     Indication: Ill-defined disorder
     Dosage: UNK UNK, BID
     Route: 065
     Dates: start: 20241021, end: 20241104
  9. ALLEVYN GENTLE BORDER [Concomitant]
     Indication: Ill-defined disorder
     Dosage: UNK UNK, UNKNOWN
     Route: 065
     Dates: start: 20241029
  10. DOXYCYCLINE [Concomitant]
     Active Substance: DOXYCYCLINE
     Indication: Ill-defined disorder
     Dosage: UNK UNK, UNKNOWN
     Route: 065
     Dates: start: 20241106, end: 20241113
  11. COCODAMOL [Concomitant]
     Active Substance: ACETAMINOPHEN\CODEINE PHOSPHATE
     Indication: Ill-defined disorder
     Dosage: UNK UNK, OTHER (1 OR 2 4 TIMES/DAY)
     Route: 065
     Dates: start: 20211126
  12. POLYETHYLENE GLYCOL 3350\POTASSIUM CHLORIDE\SODIUM BICARBONATE\SODIUM [Concomitant]
     Active Substance: POLYETHYLENE GLYCOL 3350\POTASSIUM CHLORIDE\SODIUM BICARBONATE\SODIUM CHLORIDE
     Indication: Ill-defined disorder
     Dosage: 1 DOSAGE FORM, OTHER (UP TO THREE TIMES DAILY)
     Route: 065
     Dates: start: 20221004
  13. ATENOLOL [Concomitant]
     Active Substance: ATENOLOL
     Indication: Ill-defined disorder
     Dosage: 1 DOSAGE FORM, DAILY
     Route: 065
     Dates: start: 20221004
  14. ATORVASTATIN [Concomitant]
     Active Substance: ATORVASTATIN
     Indication: Ill-defined disorder
     Dosage: 1 DOSAGE FORM, DAILY
     Dates: start: 20221004
  15. CANDESARTAN [Concomitant]
     Active Substance: CANDESARTAN
     Indication: Ill-defined disorder
     Dosage: 1 DOSAGE FORM, DAILY
     Route: 065
     Dates: start: 20221004
  16. FERROUS FUMARATE [Concomitant]
     Active Substance: FERROUS FUMARATE
     Indication: Ill-defined disorder
     Dosage: 1 DOSAGE FORM, DAILY
     Route: 065
     Dates: start: 20221004
  17. LEVOTHYROXINE [Concomitant]
     Active Substance: LEVOTHYROXINE
     Indication: Ill-defined disorder
     Dosage: 1 DOSAGE FORM, DAILY
     Route: 065
     Dates: start: 20221004
  18. INSULIN HUMAN [Concomitant]
     Active Substance: INSULIN HUMAN
     Indication: Ill-defined disorder
     Dosage: UNK UNK, OTHER (TAKE 58 UNITS 15 MINS BEFORE BREAKFAST + 54 UNI...)
     Dates: start: 20221222
  19. GLICLAZIDE [Concomitant]
     Active Substance: GLICLAZIDE
     Indication: Ill-defined disorder
     Dosage: 1 DOSAGE FORM, DAILY
     Route: 065
     Dates: start: 20230318
  20. INDAPAMIDE [Concomitant]
     Active Substance: INDAPAMIDE
     Indication: Ill-defined disorder
     Dosage: 1 DOSAGE FORM, DAILY
     Route: 065
     Dates: start: 20240310
  21. RYBELSUS [Concomitant]
     Active Substance: SEMAGLUTIDE
     Indication: Ill-defined disorder
     Dosage: 1 DOSAGE FORM, DAILY
     Route: 065
     Dates: start: 20240626

REACTIONS (2)
  - Blister [Recovered/Resolved]
  - Rash vesicular [Unknown]

NARRATIVE: CASE EVENT DATE: 20240819
